FAERS Safety Report 9213986 (Version 1)
Quarter: 2013Q2

REPORT INFORMATION
  Report Type: Spontaneous
  Country: US (occurrence: US)
  Receive Date: 20130405
  Receipt Date: 20130405
  Transmission Date: 20140414
  Serious: Yes (Other)
  Sender: FDA-Public Use
  Company Number: US-BAYER-2013-039168

PATIENT
  Age: 78 Year
  Sex: Female

DRUGS (5)
  1. ACETYLSALICYLIC ACID({=100 MG) [Suspect]
     Indication: CEREBROVASCULAR ACCIDENT
  2. ACETYLSALICYLIC ACID({=100 MG) [Suspect]
     Indication: ATRIAL FIBRILLATION
  3. WARFARIN [Suspect]
     Indication: CEREBROVASCULAR ACCIDENT
  4. WARFARIN [Suspect]
     Indication: ATRIAL FIBRILLATION
  5. MELOXICAM [Concomitant]

REACTIONS (2)
  - Haematoma [Recovered/Resolved]
  - Drug interaction [None]
